FAERS Safety Report 25300167 (Version 3)
Quarter: 2025Q2

REPORT INFORMATION
  Report Type: Spontaneous
  Country: ES (occurrence: ES)
  Receive Date: 20250512
  Receipt Date: 20250526
  Transmission Date: 20250716
  Serious: Yes (Other)
  Sender: ASTELLAS
  Company Number: ES-ASTELLAS-2025-AER-025309

PATIENT
  Age: 27 Year
  Sex: Female

DRUGS (15)
  1. XOSPATA [Suspect]
     Active Substance: GILTERITINIB
     Indication: Acute myeloid leukaemia
     Route: 065
     Dates: start: 20250308
  2. XOSPATA [Suspect]
     Active Substance: GILTERITINIB
     Indication: FLT3 gene mutation
     Dosage: REINITIATED
     Route: 065
     Dates: start: 20250109, end: 20250307
  3. TACROLIMUS [Concomitant]
     Active Substance: TACROLIMUS
     Indication: Product used for unknown indication
     Dosage: 0.5-0-0.5MG
     Route: 065
  4. TACROLIMUS [Concomitant]
     Active Substance: TACROLIMUS
     Dosage: DECREASE TO 0.5MG AT BREAKFAST
     Route: 065
  5. FAMOTIDINE [Concomitant]
     Active Substance: FAMOTIDINE
     Indication: Product used for unknown indication
     Dosage: 20.00 MILLIGRAMS, AT BEDTIME
     Route: 048
  6. ACYCLOVIR [Concomitant]
     Active Substance: ACYCLOVIR
     Indication: Product used for unknown indication
     Dosage: 800MG: HALF TABLET AT BREAKFAST
     Route: 065
  7. BUDESONIDE [Concomitant]
     Active Substance: BUDESONIDE
     Indication: Product used for unknown indication
     Dosage: DISCONTINUE IN THE ABSENCE OF IMPROVEMENT
     Route: 065
  8. SULFAMETHOXAZOLE\TRIMETHOPRIM [Concomitant]
     Active Substance: SULFAMETHOXAZOLE\TRIMETHOPRIM
     Indication: Product used for unknown indication
     Dosage: 800/160MG 1 TABLET IN THE MORNING ON MONDAY AND THURSDAY
     Route: 065
  9. MAGNOGENE [MAGNESIUM CHLORIDE] [Concomitant]
     Indication: Product used for unknown indication
     Dosage: 2 TABLETS AT DINNER
     Route: 065
  10. MARIBAVIR [Concomitant]
     Active Substance: MARIBAVIR
     Indication: Product used for unknown indication
     Dosage: 2 TABLETS AT BREAKFAST AND 2 AT DINNER FOR ANOTHER WEEK
     Route: 065
  11. BROMAZEPAM [Concomitant]
     Active Substance: BROMAZEPAM
     Indication: Product used for unknown indication
     Dosage: AT BEDTIME ?OBSERVATIONS: IF NEEDED FOR ANXIETY.
     Route: 048
  12. CLOBAZAM [Concomitant]
     Active Substance: CLOBAZAM
     Indication: Product used for unknown indication
     Dosage: AT BEDTIME
     Route: 048
  13. ESCITALOPRAM [Concomitant]
     Active Substance: ESCITALOPRAM OXALATE
     Indication: Product used for unknown indication
     Dosage: AT BREAKFAST AND DINNER
     Route: 048
  14. TRAZODONE [Concomitant]
     Active Substance: TRAZODONE HYDROCHLORIDE
     Indication: Product used for unknown indication
     Dosage: AT DINNER
     Route: 048
  15. ERYTHROPOIETIN [Concomitant]
     Active Substance: ERYTHROPOIETIN
     Indication: Product used for unknown indication
     Dosage: ON MONDAYS WEEKLY
     Route: 065

REACTIONS (3)
  - Papilloedema [Recovered/Resolved]
  - Underdose [Unknown]
  - Off label use [Unknown]

NARRATIVE: CASE EVENT DATE: 20250109
